FAERS Safety Report 23661057 (Version 1)
Quarter: 2024Q1

REPORT INFORMATION
  Report Type: Other
  Country: ES (occurrence: ES)
  Receive Date: 20240322
  Receipt Date: 20240322
  Transmission Date: 20240410
  Serious: Yes (Other)
  Sender: FDA-Public Use
  Company Number: ES-DENTSPLY-2024SCDP000074

PATIENT
  Age: 54 Year
  Sex: Female

DRUGS (2)
  1. MEPIVACAINE [Suspect]
     Active Substance: MEPIVACAINE HYDROCHLORIDE
     Indication: Epicondylitis
     Dosage: UNK DOSE OF MEPIVACAINE (1909A)
     Dates: start: 20240220
  2. CELESTONE [Suspect]
     Active Substance: BETAMETHASONE
     Indication: Epicondylitis
     Dosage: UNK
     Dates: start: 20240220

REACTIONS (1)
  - Flushing [Unknown]

NARRATIVE: CASE EVENT DATE: 20240223
